FAERS Safety Report 7655657-9 (Version None)
Quarter: 2011Q3

REPORT INFORMATION
  Report Type: 
  Country: None (occurrence: None)
  Receive Date: 20110729
  Receipt Date: 20110721
  Transmission Date: 20111222
  Serious: Yes (Other)
  Sender: FDA-Public Use
  Company Number: 2011SP034250

PATIENT
  Age: 71 Year
  Sex: Female
  Weight: 45 kg

DRUGS (3)
  1. ZALDIAR /01625001/ [Concomitant]
  2. DAFALGAN /00020001/ [Concomitant]
  3. REMERON [Suspect]
     Indication: SLEEP DISORDER
     Dosage: 30 MG;QD;PO
     Route: 048
     Dates: start: 20090106, end: 20090804

REACTIONS (3)
  - ASTROCYTOMA [None]
  - HEMIANOPIA HOMONYMOUS [None]
  - RASH [None]
